FAERS Safety Report 18532724 (Version 4)
Quarter: 2021Q1

REPORT INFORMATION
  Report Type: Spontaneous
  Country: AR (occurrence: AR)
  Receive Date: 20201123
  Receipt Date: 20210224
  Transmission Date: 20210419
  Serious: Yes (Other)
  Sender: FDA-Public Use
  Company Number: AR-AMGEN-ARGSP2020190210

PATIENT
  Age: 70 Year
  Sex: Male

DRUGS (1)
  1. ENBREL [Suspect]
     Active Substance: ETANERCEPT
     Indication: RHEUMATOID ARTHRITIS
     Dosage: 50 MG, WEEKLY
     Route: 065
     Dates: start: 20120731, end: 20181118

REACTIONS (4)
  - Head injury [Unknown]
  - Accident [Unknown]
  - Cerebral haematoma [Unknown]
  - Leukaemia [Unknown]

NARRATIVE: CASE EVENT DATE: 20181118
